FAERS Safety Report 7576724-4 (Version None)
Quarter: 2011Q2

REPORT INFORMATION
  Report Type: 
  Country: None (occurrence: None)
  Receive Date: 20110624
  Receipt Date: 20110624
  Transmission Date: 20111010
  Serious: Yes (Other)
  Sender: FDA-Public Use
  Company Number: None

PATIENT
  Age: 45 Year
  Sex: Female
  Weight: 52.6173 kg

DRUGS (1)
  1. ZOLPIDEM TARTRATE [Suspect]
     Indication: INSOMNIA
     Dosage: 10 MG ONCE PO
     Route: 048
     Dates: start: 20110622, end: 20110623

REACTIONS (7)
  - DIARRHOEA [None]
  - VISION BLURRED [None]
  - APHASIA [None]
  - ABASIA [None]
  - DIZZINESS [None]
  - NAUSEA [None]
  - FEELING DRUNK [None]
